FAERS Safety Report 25262258 (Version 1)
Quarter: 2025Q2

REPORT INFORMATION
  Report Type: Spontaneous
  Country: PL (occurrence: PL)
  Receive Date: 20250502
  Receipt Date: 20250502
  Transmission Date: 20250717
  Serious: Yes (Hospitalization, Other)
  Sender: Kenvue
  Company Number: PL-KENVUE-20250408549

PATIENT

DRUGS (1)
  1. ACETAMINOPHEN [Suspect]
     Active Substance: ACETAMINOPHEN
     Indication: Musculoskeletal pain
     Route: 065

REACTIONS (10)
  - Adverse drug reaction [Unknown]
  - Respiratory disorder [Unknown]
  - Cutaneous symptom [Unknown]
  - Abdominal pain [Unknown]
  - Loss of consciousness [Unknown]
  - Nasal obstruction [Unknown]
  - Cough [Unknown]
  - Urticaria [Unknown]
  - Anaphylactic reaction [Unknown]
  - Angioedema [Unknown]
